FAERS Safety Report 14714777 (Version 1)
Quarter: 2018Q1

REPORT INFORMATION
  Report Type: Spontaneous
  Country: US (occurrence: US)
  Receive Date: 20180330
  Receipt Date: 20180330
  Transmission Date: 20180509
  Serious: No
  Sender: FDA-Public Use
  Company Number: None

PATIENT
  Age: 73 Year
  Sex: Male
  Weight: 59.87 kg

DRUGS (1)
  1. ALENDRONATE [Suspect]
     Active Substance: ALENDRONATE SODIUM
     Indication: OSTEOPOROSIS
     Route: 048
     Dates: start: 20031017, end: 20041022

REACTIONS (4)
  - Gastric ulcer [None]
  - Abdominal pain [None]
  - Abdominal discomfort [None]
  - Peptic ulcer [None]

NARRATIVE: CASE EVENT DATE: 20041022
